FAERS Safety Report 25885898 (Version 1)
Quarter: 2025Q4

REPORT INFORMATION
  Report Type: Spontaneous
  Country: US (occurrence: US)
  Receive Date: 20251006
  Receipt Date: 20251006
  Transmission Date: 20260117
  Serious: No
  Sender: JOHNSON AND JOHNSON
  Company Number: US-JNJFOC-20250936865

PATIENT
  Age: 41 Year

DRUGS (3)
  1. XARELTO [Suspect]
     Active Substance: RIVAROXABAN
     Indication: Deep vein thrombosis
     Route: 048
  2. XARELTO [Suspect]
     Active Substance: RIVAROXABAN
     Indication: Pulmonary embolism
     Route: 048
  3. MUPIROCIN [Concomitant]
     Active Substance: MUPIROCIN
     Indication: Cellulitis

REACTIONS (7)
  - Furuncle [Unknown]
  - Wound haemorrhage [Unknown]
  - International normalised ratio decreased [Unknown]
  - Coagulation time prolonged [Unknown]
  - Cellulitis [Unknown]
  - Haemorrhage [Unknown]
  - Fatigue [Unknown]

NARRATIVE: CASE EVENT DATE: 20250801
